FAERS Safety Report 17650070 (Version 2)
Quarter: 2020Q2

REPORT INFORMATION
  Report Type: Report from Study
  Country: None (occurrence: IT)
  Receive Date: 20200409
  Receipt Date: 20200430
  Transmission Date: 20200713
  Serious: Yes (Death, Hospitalization)
  Sender: FDA-Public Use
  Company Number: IT-ABBVIE-20K-083-3356798-00

PATIENT
  Age: 69 Year
  Sex: Female

DRUGS (1)
  1. DUODOPA [Suspect]
     Active Substance: CARBIDOPA\LEVODOPA
     Indication: PARKINSON^S DISEASE
     Dosage: MD: 2+3??CR: 1,5 (11H)??ED: 1,5
     Route: 050
     Dates: start: 20170612, end: 20200415

REACTIONS (5)
  - Condition aggravated [Fatal]
  - Decubitus ulcer [Unknown]
  - Ulcer [Unknown]
  - Sepsis [Unknown]
  - Coronavirus infection [Fatal]

NARRATIVE: CASE EVENT DATE: 202003
